FAERS Safety Report 19255910 (Version 3)
Quarter: 2021Q2

REPORT INFORMATION
  Report Type: Other
  Country: US (occurrence: US)
  Receive Date: 20210514
  Receipt Date: 20210528
  Transmission Date: 20210717
  Serious: Yes (Other)
  Sender: FDA-Public Use
  Company Number: US-ROCHE-1192928

PATIENT
  Age: 71 Year
  Sex: Male

DRUGS (4)
  1. CELLCEPT [Suspect]
     Active Substance: MYCOPHENOLATE MOFETIL\MYCOPHENOLATE MOFETIL HYDROCHLORIDE
     Indication: RENAL TRANSPLANT
  2. CELLCEPT [Suspect]
     Active Substance: MYCOPHENOLATE MOFETIL\MYCOPHENOLATE MOFETIL HYDROCHLORIDE
     Indication: HEART TRANSPLANT
     Route: 048
  3. CELLCEPT [Suspect]
     Active Substance: MYCOPHENOLATE MOFETIL\MYCOPHENOLATE MOFETIL HYDROCHLORIDE
     Indication: POST TRANSPLANT LYMPHOPROLIFERATIVE DISORDER
     Route: 048
  4. CELLCEPT [Suspect]
     Active Substance: MYCOPHENOLATE MOFETIL\MYCOPHENOLATE MOFETIL HYDROCHLORIDE
     Indication: PSYCHOLOGICAL TRAUMA

REACTIONS (11)
  - Fall [Unknown]
  - Neoplasm malignant [Unknown]
  - Lymphoma [Recovered/Resolved]
  - Malaise [Unknown]
  - Back injury [Unknown]
  - Cough [Unknown]
  - Fall [Unknown]
  - Rib fracture [Unknown]
  - Skin cancer [Unknown]
  - Cerebrovascular accident [Recovered/Resolved]
  - Mental impairment [Unknown]

NARRATIVE: CASE EVENT DATE: 20130707
